FAERS Safety Report 7641197-X (Version None)
Quarter: 2011Q3

REPORT INFORMATION
  Report Type: 
  Country: None (occurrence: None)
  Receive Date: 20110728
  Receipt Date: 20110720
  Transmission Date: 20111222
  Serious: Yes (Hospitalization)
  Sender: FDA-Public Use
  Company Number: PHHY2011BR66080

PATIENT
  Sex: Male

DRUGS (8)
  1. FUROSEMIDE [Concomitant]
     Dosage: 1 DF,DAILY
     Route: 048
  2. CARVEDILOL [Concomitant]
     Indication: BLOOD PRESSURE
     Dosage: 1 TABLET IN THE MORNING
     Route: 048
  3. DONEPEZIL HYDROCHLORIDE [Concomitant]
     Indication: PARKINSON'S DISEASE
     Dosage: 2 DF, DAILY
     Route: 048
  4. STALEVO 100 [Suspect]
     Dosage: 100 MG, BID
     Route: 048
  5. STALEVO 100 [Suspect]
     Dosage: 150 MG
     Route: 048
  6. TRAZODONE HYDROCHLORIDE [Concomitant]
     Indication: DEPRESSION
     Dosage: 3 TIMES A DAY
     Route: 048
  7. PROPAFENONE HCL [Concomitant]
     Indication: CARDIAC DISORDER
     Dosage: 1 TABLET IN MORNING
     Route: 048
  8. WARFARIN SODIUM [Concomitant]
     Indication: CARDIAC DISORDER
     Dosage: 1/4 THE TABLET A DAY
     Route: 048

REACTIONS (2)
  - DYSSTASIA [None]
  - CEREBROVASCULAR ACCIDENT [None]
